FAERS Safety Report 22214074 (Version 2)
Quarter: 2023Q2

REPORT INFORMATION
  Report Type: Report from Study
  Country: US (occurrence: US)
  Receive Date: 20230414
  Receipt Date: 20230428
  Transmission Date: 20230722
  Serious: Yes (Hospitalization, Other)
  Sender: FDA-Public Use
  Company Number: US-GILEAD-2023-0624034

PATIENT
  Age: 56 Year
  Sex: Male
  Weight: 155.8 kg

DRUGS (9)
  1. SACITUZUMAB GOVITECAN-HZIY [Suspect]
     Active Substance: SACITUZUMAB GOVITECAN-HZIY
     Indication: Bladder cancer
     Dosage: 7.5 MG/KG, ONCE, C1D1
     Route: 042
     Dates: start: 20230330
  2. CISPLATIN [Suspect]
     Active Substance: CISPLATIN
     Indication: Bladder cancer
     Dosage: 70 MG/M2, ONCE, C1D1
     Route: 042
     Dates: start: 20230330
  3. MAGNESIUM SULFATE;POTASSIUM CHLORIDE;SODIUM CHLORIDE [Concomitant]
  4. PALONOSETRON [Concomitant]
     Active Substance: PALONOSETRON
  5. FAMOTIDINE [Concomitant]
     Active Substance: FAMOTIDINE
  6. DIPHENHYDRAMINE [Concomitant]
     Active Substance: DIPHENHYDRAMINE
  7. APREPITANT [Concomitant]
     Active Substance: APREPITANT
  8. ACETAMINOPHEN [Concomitant]
     Active Substance: ACETAMINOPHEN
  9. SODIUM CHLORIDE [Concomitant]
     Active Substance: SODIUM CHLORIDE

REACTIONS (6)
  - Embolism [Not Recovered/Not Resolved]
  - Duodenitis [Not Recovered/Not Resolved]
  - Urinary tract infection [Recovered/Resolved]
  - Febrile neutropenia [Recovered/Resolved]
  - Nausea [Not Recovered/Not Resolved]
  - Vomiting [Not Recovered/Not Resolved]

NARRATIVE: CASE EVENT DATE: 20230331
